FAERS Safety Report 17056921 (Version 1)
Quarter: 2019Q4

REPORT INFORMATION
  Report Type: Spontaneous
  Country: US (occurrence: US)
  Receive Date: 20191121
  Receipt Date: 20191121
  Transmission Date: 20200122
  Serious: Yes (Death, Hospitalization, Other)
  Sender: FDA-Public Use
  Company Number: US-APOTEX-2019AP025038

PATIENT
  Age: 74 Year
  Sex: Female

DRUGS (2)
  1. ACETAMINOPHEN. [Suspect]
     Active Substance: ACETAMINOPHEN
     Indication: PRODUCT USED FOR UNKNOWN INDICATION
     Dosage: UNK
     Route: 065
  2. METFORMIN [Suspect]
     Active Substance: METFORMIN HYDROCHLORIDE
     Indication: PRODUCT USED FOR UNKNOWN INDICATION
     Dosage: UNK
     Route: 065

REACTIONS (8)
  - Hypotension [Fatal]
  - Osmolar gap [Fatal]
  - Delirium [Fatal]
  - Toxicity to various agents [Fatal]
  - Electrocardiogram QT prolonged [Fatal]
  - Metabolic acidosis [Fatal]
  - Anion gap [Fatal]
  - Hepatotoxicity [Fatal]
